FAERS Safety Report 10058314 (Version 1)
Quarter: 2014Q2

REPORT INFORMATION
  Report Type: Spontaneous
  Country: US (occurrence: None)
  Receive Date: 20140403
  Receipt Date: 20140403
  Transmission Date: 20141212
  Serious: Yes (Hospitalization)
  Sender: FDA-Public Use
  Company Number: None

PATIENT
  Age: 63 Year
  Sex: Male
  Weight: 102 kg

DRUGS (2)
  1. CISPLATIN [Suspect]
     Dates: end: 20090817
  2. PACLITAXEL (TAXOL) [Suspect]
     Dates: end: 20090817

REACTIONS (4)
  - Dehydration [None]
  - Nausea [None]
  - Hiccups [None]
  - Vomiting [None]
